FAERS Safety Report 8418523-7 (Version None)
Quarter: 2012Q2

REPORT INFORMATION
  Report Type: 
  Country: None (occurrence: None)
  Receive Date: 20120607
  Receipt Date: 20120531
  Transmission Date: 20120825
  Serious: Yes (Life-Threatening)
  Sender: FDA-Public Use
  Company Number: DE-BAYER-2012-054189

PATIENT
  Age: 72 Year
  Sex: Male
  Weight: 70 kg

DRUGS (3)
  1. FRAXIPARIN [Suspect]
     Indication: ACUTE MYOCARDIAL INFARCTION
     Dosage: DOSE 0.3
     Route: 058
     Dates: start: 20111213, end: 20111215
  2. TICAGRELOR [Suspect]
     Indication: ACUTE MYOCARDIAL INFARCTION
     Dosage: 90 MG, UNK
     Route: 048
     Dates: start: 20111213, end: 20111215
  3. ASPIRIN [Suspect]
     Indication: ACUTE MYOCARDIAL INFARCTION
     Route: 048

REACTIONS (1)
  - HAEMOGLOBIN DECREASED [None]
